FAERS Safety Report 9185992 (Version 1)
Quarter: 2013Q1

REPORT INFORMATION
  Report Type: Spontaneous
  Country: US (occurrence: US)
  Receive Date: 20130325
  Receipt Date: 20130325
  Transmission Date: 20140127
  Serious: No
  Sender: FDA-Public Use
  Company Number: US-ASTRAZENECA-2007UW23132

PATIENT
  Age: 79 Year
  Sex: Female
  Weight: 63.5 kg

DRUGS (8)
  1. NEXIUM [Suspect]
     Indication: PHARYNGITIS
     Route: 048
     Dates: end: 200709
  2. NEXIUM [Suspect]
     Indication: SENSATION OF FOREIGN BODY
     Route: 048
     Dates: end: 200709
  3. NEXIUM [Suspect]
     Indication: PHARYNGITIS
     Route: 048
     Dates: start: 20130215
  4. NEXIUM [Suspect]
     Indication: SENSATION OF FOREIGN BODY
     Route: 048
     Dates: start: 20130215
  5. NORVASC [Concomitant]
  6. SYNTHROID [Concomitant]
  7. TRIAMTERENE/HCTZ [Concomitant]
  8. ASPIRIN [Concomitant]

REACTIONS (6)
  - Nervousness [Unknown]
  - Feeling abnormal [Unknown]
  - Headache [Unknown]
  - Flatulence [Unknown]
  - Nausea [Recovering/Resolving]
  - Intentional drug misuse [Unknown]
